FAERS Safety Report 24530256 (Version 1)
Quarter: 2024Q4

REPORT INFORMATION
  Report Type: Spontaneous
  Country: RS (occurrence: RS)
  Receive Date: 20241021
  Receipt Date: 20241021
  Transmission Date: 20250114
  Serious: Yes (Hospitalization, Other)
  Sender: VIIV
  Company Number: RS-VIIV HEALTHCARE-RS2024EME127298

PATIENT

DRUGS (2)
  1. TIVICAY [Suspect]
     Active Substance: DOLUTEGRAVIR SODIUM
     Indication: HIV infection
     Dosage: 50 MG
  2. TRUVADA [Suspect]
     Active Substance: EMTRICITABINE\TENOFOVIR DISOPROXIL FUMARATE
     Indication: HIV infection
     Dosage: UNK

REACTIONS (5)
  - Suicide attempt [Unknown]
  - Toxicity to various agents [Unknown]
  - Alcohol poisoning [Unknown]
  - Alcohol abuse [Unknown]
  - Insomnia [Unknown]

NARRATIVE: CASE EVENT DATE: 20240601
